FAERS Safety Report 9669278 (Version 2)
Quarter: 2013Q4

REPORT INFORMATION
  Report Type: Report from Study
  Country: US (occurrence: US)
  Receive Date: 20131105
  Receipt Date: 20131219
  Transmission Date: 20140711
  Serious: Yes (Other)
  Sender: FDA-Public Use
  Company Number: US-ROCHE-1294492

PATIENT
  Age: 58 Year
  Sex: Female
  Weight: 70.37 kg

DRUGS (41)
  1. VISMODEGIB [Suspect]
     Indication: BASAL CELL NAEVUS SYNDROME
     Dosage: DISCONTINUED ON AN UNSPECIFIED DATE.
     Route: 048
     Dates: start: 20100909
  2. VISMODEGIB [Suspect]
     Indication: BASAL CELL NAEVUS SYNDROME
     Dosage: AS PER PROTOCOL, AFTER 18 MONTHS OF BLINDED VISMODEGIB, THE PATIENT WAS STARTED ON OPEN LABEL VISMOD
     Route: 048
  3. DIAZEPAM [Concomitant]
     Route: 065
  4. TEMAZEPAM [Concomitant]
     Route: 065
  5. SEROQUEL [Concomitant]
     Route: 065
  6. EFFEXOR [Concomitant]
     Route: 065
  7. LAMOTRIGINE [Concomitant]
     Route: 065
  8. PRILOSEC [Concomitant]
     Indication: GASTROOESOPHAGEAL REFLUX DISEASE
     Route: 065
     Dates: start: 2002
  9. TOPAMAX [Concomitant]
     Indication: HEADACHE
     Route: 065
  10. TOPAMAX [Concomitant]
     Route: 065
     Dates: start: 20121027
  11. METFORMIN [Concomitant]
     Indication: BLOOD GLUCOSE INCREASED
     Route: 065
     Dates: start: 20101027, end: 20110503
  12. METFORMIN [Concomitant]
     Route: 065
     Dates: start: 20110504
  13. SIMVASTATIN [Concomitant]
     Indication: BLOOD CHOLESTEROL INCREASED
     Route: 065
  14. SIMVASTATIN [Concomitant]
     Route: 065
     Dates: start: 20110501
  15. ROPINIROLE [Concomitant]
     Indication: RESTLESS LEGS SYNDROME
     Route: 065
     Dates: start: 20101026, end: 20101027
  16. ROPINIROLE [Concomitant]
     Route: 065
     Dates: start: 20101028
  17. FENTANYL PATCH [Concomitant]
     Indication: PAIN
     Dosage: 50MCG/HR QOD
     Route: 065
     Dates: start: 2002
  18. NASONEX [Concomitant]
     Indication: SEASONAL ALLERGY
     Route: 065
     Dates: start: 2008
  19. DULOXETINE HYDROCHLORIDE [Concomitant]
     Indication: DEPRESSION
     Route: 065
  20. DULOXETINE HYDROCHLORIDE [Concomitant]
     Indication: ANXIETY
  21. LAMICTAL [Concomitant]
     Indication: CONVULSION
     Route: 065
     Dates: start: 2002
  22. LAMICTAL [Concomitant]
     Route: 065
     Dates: start: 20100811, end: 20110509
  23. VENLAFAXINE [Concomitant]
     Indication: DEPRESSION
     Route: 065
     Dates: start: 2002, end: 20100709
  24. VENLAFAXINE [Concomitant]
     Route: 065
     Dates: start: 20100710
  25. IMITREX [Concomitant]
     Indication: HEADACHE
     Route: 065
     Dates: start: 2002
  26. METHYLCOBALAMIN [Concomitant]
     Indication: ANAEMIA
     Route: 065
     Dates: start: 201004
  27. METHYLCOBALAMIN [Concomitant]
     Indication: NEUROPATHY PERIPHERAL
  28. BENADRYL (UNITED STATES) [Concomitant]
     Indication: SEASONAL ALLERGY
     Route: 065
     Dates: start: 1980
  29. NAPROXEN [Concomitant]
     Indication: PAIN
     Route: 065
     Dates: start: 201003
  30. DOCUSATE [Concomitant]
     Indication: CONSTIPATION
     Route: 065
     Dates: start: 1985
  31. CRESTOR [Concomitant]
     Indication: BLOOD CHOLESTEROL INCREASED
     Route: 065
     Dates: start: 20100719, end: 20110430
  32. ZOLPIDEM [Concomitant]
     Indication: INSOMNIA
     Route: 065
     Dates: start: 20101109
  33. HYDROCODONE HYDROCHLORIDE [Concomitant]
     Indication: PAIN
     Route: 065
     Dates: start: 20110303, end: 20110309
  34. HYDROCODONE HYDROCHLORIDE [Concomitant]
     Route: 065
     Dates: start: 20110310, end: 20110323
  35. IMODIUM [Concomitant]
     Indication: DIARRHOEA
     Route: 065
     Dates: start: 20110615
  36. TOPAMAX [Concomitant]
     Indication: HEADACHE
     Route: 065
     Dates: start: 20110719, end: 20121026
  37. TOPAMAX [Concomitant]
     Indication: CONVULSION
     Route: 065
     Dates: start: 20111027
  38. TOPAMAX [Concomitant]
     Indication: MIGRAINE
     Route: 065
     Dates: start: 20110510, end: 201107
  39. RELPAX [Concomitant]
     Indication: HEADACHE
     Route: 065
     Dates: start: 20110725
  40. KEFLEX [Concomitant]
     Route: 065
     Dates: start: 20111028, end: 20111028
  41. LORAZEPAM [Concomitant]
     Indication: ANXIETY
     Route: 065
     Dates: start: 20100607

REACTIONS (2)
  - Pancreatic insufficiency [Recovering/Resolving]
  - Diarrhoea [Recovering/Resolving]
